FAERS Safety Report 16730002 (Version 3)
Quarter: 2019Q3

REPORT INFORMATION
  Report Type: Report from Study
  Country: US (occurrence: US)
  Receive Date: 20190822
  Receipt Date: 20190911
  Transmission Date: 20191005
  Serious: Yes (Hospitalization)
  Sender: FDA-Public Use
  Company Number: PHEH2019US034095

PATIENT
  Sex: Female

DRUGS (1)
  1. ENTRESTO [Suspect]
     Active Substance: SACUBITRIL\VALSARTAN
     Indication: CARDIAC FAILURE
     Dosage: UNK
     Route: 048

REACTIONS (9)
  - Pain [Unknown]
  - Insomnia [Unknown]
  - Nerve compression [Unknown]
  - Hypotension [Unknown]
  - Muscle strain [Unknown]
  - Arthralgia [Unknown]
  - Vomiting [Unknown]
  - Muscle spasms [Unknown]
  - Pain in extremity [Unknown]
